FAERS Safety Report 8600479-5 (Version None)
Quarter: 2012Q3

REPORT INFORMATION
  Report Type: 
  Country: None (occurrence: None)
  Receive Date: 20120808
  Receipt Date: 20120808
  Transmission Date: 20120928
  Serious: Yes (Other)
  Sender: FDA-Public Use
  Company Number: None

PATIENT
  Sex: Male
  Weight: 81.6475 kg

DRUGS (3)
  1. TAMSULOSIN HCL [Suspect]
     Indication: PROSTATIC DISORDER
     Dosage: 0.4 MG CAP DAILY USE
     Dates: start: 20120101
  2. TAMSULOSIN HCL [Suspect]
     Indication: MICTURITION DISORDER
     Dosage: 0.4 MG CAP DAILY USE
     Dates: start: 20120101
  3. TERAZOSIN HYDROCHLORIDE [Concomitant]

REACTIONS (1)
  - MALE ORGASMIC DISORDER [None]
